FAERS Safety Report 16277201 (Version 1)
Quarter: 2019Q2

REPORT INFORMATION
  Report Type: Spontaneous
  Country: US (occurrence: US)
  Receive Date: 20190401
  Receipt Date: 20190401
  Transmission Date: 20190711
  Serious: Yes (Other)
  Sender: FDA-Public Use
  Company Number: None

PATIENT
  Age: 37 Year
  Sex: Female
  Weight: 51.71 kg

DRUGS (2)
  1. TT380 SLIMLINE INTRAUTERINE DEVICE [Suspect]
     Active Substance: COPPER
  2. SPIRONOLACTONE. [Concomitant]
     Active Substance: SPIRONOLACTONE

REACTIONS (5)
  - Gait disturbance [None]
  - Vaginal haemorrhage [None]
  - Insomnia [None]
  - Abdominal pain lower [None]
  - Muscle spasms [None]

NARRATIVE: CASE EVENT DATE: 20190301
